FAERS Safety Report 14068106 (Version 1)
Quarter: 2017Q4

REPORT INFORMATION
  Report Type: Spontaneous
  Country: US (occurrence: US)
  Receive Date: 20171009
  Receipt Date: 20171009
  Transmission Date: 20180321
  Serious: Yes (Other)
  Sender: FDA-Public Use
  Company Number: None

PATIENT
  Age: 76 Year
  Sex: Female

DRUGS (2)
  1. WARFARIN [Suspect]
     Active Substance: WARFARIN
     Route: 048
     Dates: start: 20170911, end: 20171009
  2. WARFARIN [Suspect]
     Active Substance: WARFARIN
     Route: 048
     Dates: start: 20170911, end: 20171009

REACTIONS (3)
  - Therapy change [None]
  - International normalised ratio decreased [None]
  - Product quality issue [None]

NARRATIVE: CASE EVENT DATE: 20171006
